FAERS Safety Report 10649609 (Version 1)
Quarter: 2014Q4

REPORT INFORMATION
  Report Type: Spontaneous
  Country: US (occurrence: None)
  Receive Date: 20141205
  Receipt Date: 20141205
  Transmission Date: 20150529
  Serious: No
  Sender: FDA-Public Use
  Company Number: USA-2014105767

PATIENT
  Age: 85 Year
  Sex: Male
  Weight: 75.75 kg

DRUGS (14)
  1. DEXAMETHASONE. [Concomitant]
     Active Substance: DEXAMETHASONE
  2. LEXAPRO (ESCITALOPRAM) [Concomitant]
  3. DIGOXIN. [Concomitant]
     Active Substance: DIGOXIN
  4. ASPIRIN (ACETYLSALICYLIC ACID) [Concomitant]
     Active Substance: ASPIRIN
  5. COLACE [Concomitant]
     Active Substance: DOCUSATE SODIUM
  6. POMALYST [Suspect]
     Active Substance: POMALIDOMIDE
     Indication: PLASMA CELL MYELOMA
     Dosage: 21 IN 21 D
     Route: 048
     Dates: start: 20140502
  7. FLUDROCORTISONE [Concomitant]
     Active Substance: FLUDROCORTISONE
  8. HYOSCYAMINE [Concomitant]
     Active Substance: HYOSCYAMINE
  9. COMPLETE MULTIVITAMINS (ERGOCALCIFEROL, ASCORBIC ACID, FOLIC ACID, THIAMINE HYDROCHLORIDE, RETINOL, RIBOFLAVIN, NICOTINAMIDE, PANTHENOL) [Concomitant]
  10. DILTIAZEM [Concomitant]
     Active Substance: DILTIAZEM
  11. CALCIUM [Concomitant]
     Active Substance: CALCIUM
  12. IRON [Concomitant]
     Active Substance: IRON
  13. VALACYCLOVIR (VALACICLOVIR) [Concomitant]
  14. OMEPRAZOLE. [Concomitant]
     Active Substance: OMEPRAZOLE

REACTIONS (1)
  - Gait disturbance [None]

NARRATIVE: CASE EVENT DATE: 2014
